FAERS Safety Report 7227925-6 (Version None)
Quarter: 2011Q1

REPORT INFORMATION
  Report Type: 
  Country: None (occurrence: None)
  Receive Date: 20110114
  Receipt Date: 20110112
  Transmission Date: 20110831
  Serious: Yes (Death)
  Sender: FDA-Public Use
  Company Number: GR-PFIZER INC-2011007412

PATIENT
  Age: 90 Year
  Sex: Male
  Weight: 70 kg

DRUGS (9)
  1. MOXIFLOXACIN [Suspect]
     Indication: ABDOMINAL INFECTION
     Dosage: 400 MG, 2X/DAY
     Route: 042
     Dates: start: 20090516, end: 20090518
  2. LEVOPHED [Suspect]
     Dosage: 3 AMP/24HRS
     Route: 042
     Dates: start: 20090519
  3. INNOHEP [Suspect]
     Indication: ANTICOAGULANT THERAPY
     Dosage: UNK
     Route: 058
     Dates: start: 20090519
  4. TIGECYCLINE [Suspect]
     Dosage: 50 MG, 2X/DAY
     Route: 042
     Dates: start: 20090528, end: 20090609
  5. METRONIDAZOLE [Suspect]
     Dosage: 500 MG, 3X/DAY
     Route: 042
     Dates: start: 20050519, end: 20090523
  6. COLIMYCINE [Suspect]
     Indication: ABDOMINAL INFECTION
     Dosage: 1000000 UNK, 4X/DAY
     Route: 042
     Dates: start: 20090526, end: 20090528
  7. PIPERACILLIN AND TAZOBACTAM [Suspect]
     Dosage: 4.5 MG, 3X/DAY
     Route: 042
     Dates: start: 20090516, end: 20090525
  8. NETILMICIN [Suspect]
     Indication: ABDOMINAL INFECTION
     Dosage: 300 MG, 1X/DAY
     Route: 042
     Dates: start: 20090529, end: 20090608
  9. DAPTOMYCIN [Suspect]
     Indication: ABDOMINAL INFECTION
     Dosage: 350 MG, 1X/DAY
     Route: 042
     Dates: start: 20090524, end: 20090525

REACTIONS (1)
  - DEATH [None]
